FAERS Safety Report 10303207 (Version 2)
Quarter: 2014Q3

REPORT INFORMATION
  Report Type: Spontaneous
  Country: JP (occurrence: JP)
  Receive Date: 20140714
  Receipt Date: 20140724
  Transmission Date: 20150326
  Serious: Yes (Other)
  Sender: FDA-Public Use
  Company Number: JP-ACTAVIS-2014-15143

PATIENT
  Age: 62 Year
  Sex: Male

DRUGS (3)
  1. DOCETAXEL (UNKNOWN) [Suspect]
     Active Substance: DOCETAXEL
     Indication: OESOPHAGEAL CARCINOMA
     Dosage: UNK, LOW DOSE
     Route: 065
  2. CISPLATIN (UNKNOWN) [Suspect]
     Active Substance: CISPLATIN
     Indication: OESOPHAGEAL CARCINOMA
     Dosage: 80 MG/M2, CYCLICAL
     Route: 065
  3. 5-FLUOROURACIL                     /00098802/ [Suspect]
     Active Substance: FLUOROURACIL
     Indication: OESOPHAGEAL CARCINOMA
     Dosage: 800 MG/M2, CYCLICAL
     Route: 065

REACTIONS (1)
  - Interstitial lung disease [Unknown]
